FAERS Safety Report 23034486 (Version 1)
Quarter: 2023Q4

REPORT INFORMATION
  Report Type: Spontaneous
  Country: US (occurrence: US)
  Receive Date: 20231005
  Receipt Date: 20231005
  Transmission Date: 20240110
  Serious: Yes (Hospitalization, Other)
  Sender: FDA-Public Use
  Company Number: US-SUN PHARMACEUTICAL INDUSTRIES LTD-2023R1-411388

PATIENT
  Age: 71 Year
  Sex: Female

DRUGS (1)
  1. SODIUM NITROPRUSSIDE [Suspect]
     Active Substance: SODIUM NITROPRUSSIDE
     Indication: Cardiogenic shock
     Dosage: 0.25-3 MCG/ KG/MIN
     Route: 065

REACTIONS (3)
  - Toxicity to various agents [Unknown]
  - Renal impairment [Recovering/Resolving]
  - Mental status changes [Recovering/Resolving]
